FAERS Safety Report 20246103 (Version 1)
Quarter: 2021Q4

REPORT INFORMATION
  Report Type: Spontaneous
  Country: ES (occurrence: ES)
  Receive Date: 20211229
  Receipt Date: 20211229
  Transmission Date: 20220303
  Serious: Yes (Other)
  Sender: FDA-Public Use
  Company Number: ES-ABBVIE-21K-144-4214223-00

PATIENT
  Age: 75 Year
  Sex: Female

DRUGS (1)
  1. VALPROIC ACID [Suspect]
     Active Substance: VALPROIC ACID
     Indication: Status epilepticus
     Route: 017
     Dates: start: 20180812, end: 20180817

REACTIONS (1)
  - Hyperammonaemia [Unknown]

NARRATIVE: CASE EVENT DATE: 20180814
